FAERS Safety Report 20087169 (Version 1)
Quarter: 2021Q4

REPORT INFORMATION
  Report Type: Spontaneous
  Country: ES (occurrence: ES)
  Receive Date: 20211118
  Receipt Date: 20211118
  Transmission Date: 20220303
  Serious: Yes (Other)
  Sender: FDA-Public Use
  Company Number: ES-CELLTRION HEALTHCARE HUNGARY KFT-2021ES013472

PATIENT

DRUGS (12)
  1. RITUXIMAB [Suspect]
     Active Substance: RITUXIMAB
     Indication: Follicular lymphoma
     Dosage: 8 CYCLES R-CHOP
     Route: 058
  2. RITUXIMAB [Suspect]
     Active Substance: RITUXIMAB
     Dosage: 8 CYCLES R-ESHAP
     Route: 058
     Dates: start: 201403
  3. IBRUTINIB [Suspect]
     Active Substance: IBRUTINIB
     Indication: Follicular lymphoma
     Dosage: UNK
  4. BENDAMUSTINE [Suspect]
     Active Substance: BENDAMUSTINE
     Indication: Follicular lymphoma
     Dosage: MONOTHERAPY
  5. CISPLATIN [Suspect]
     Active Substance: CISPLATIN
     Indication: Follicular lymphoma
     Dosage: 8 CYCLES
     Route: 058
     Dates: start: 201403
  6. CYTARABINE [Suspect]
     Active Substance: CYTARABINE
     Indication: Follicular lymphoma
     Dosage: 8 CYCLES
     Route: 058
     Dates: start: 201403
  7. ETOPOSIDE [Suspect]
     Active Substance: ETOPOSIDE
     Indication: Follicular lymphoma
     Dosage: 8 CYCLES
     Route: 058
     Dates: start: 201403
  8. METHYLPREDNISOLONE [Suspect]
     Active Substance: METHYLPREDNISOLONE
     Indication: Follicular lymphoma
     Dosage: 8 CYCLES
     Route: 058
     Dates: start: 201403
  9. CYCLOPHOSPHAMIDE [Suspect]
     Active Substance: CYCLOPHOSPHAMIDE
     Indication: Follicular lymphoma
     Dosage: 8 CYCLES
     Route: 058
  10. DOXORUBICIN HYDROCHLORIDE [Suspect]
     Active Substance: DOXORUBICIN HYDROCHLORIDE
     Indication: Follicular lymphoma
     Dosage: 8 CYCLES
     Route: 058
  11. PREDNISONE [Suspect]
     Active Substance: PREDNISONE
     Indication: Follicular lymphoma
     Dosage: 8 CYCLES
     Route: 058
  12. VINCRISTINE SULFATE [Suspect]
     Active Substance: VINCRISTINE SULFATE
     Indication: Follicular lymphoma
     Dosage: 8 CYCLES
     Route: 058

REACTIONS (7)
  - Thrombocytopenia [Unknown]
  - Disease recurrence [Unknown]
  - Neoplasm progression [Unknown]
  - Product use issue [Unknown]
  - Off label use [Unknown]
  - Therapy partial responder [Unknown]
  - Splenomegaly [Unknown]

NARRATIVE: CASE EVENT DATE: 20131201
